FAERS Safety Report 16940405 (Version 1)
Quarter: 2019Q4

REPORT INFORMATION
  Report Type: Spontaneous
  Country: BR (occurrence: BR)
  Receive Date: 20191021
  Receipt Date: 20191021
  Transmission Date: 20200122
  Serious: Yes (Death, Other)
  Sender: FDA-Public Use
  Company Number: BR-VALIDUS PHARMACEUTICALS LLC-BR-2019VAL000614

PATIENT

DRUGS (1)
  1. PETHIDINE HYDROCHLORIDE [Suspect]
     Active Substance: MEPERIDINE HYDROCHLORIDE
     Indication: ANALGESIC THERAPY
     Dosage: 5 AMPOULES PER MONTH IN THE HOSPITAL AND AT HOME STARTED TO USE TWICE A DAY BY HIS OWN
     Route: 030
     Dates: start: 201610, end: 20161215

REACTIONS (3)
  - Intentional product misuse [Unknown]
  - Pneumonia [Fatal]
  - Septic shock [Fatal]

NARRATIVE: CASE EVENT DATE: 2016
